FAERS Safety Report 24023589 (Version 4)
Quarter: 2024Q3

REPORT INFORMATION
  Report Type: Report from Study
  Country: CN (occurrence: CN)
  Receive Date: 20240627
  Receipt Date: 20240710
  Transmission Date: 20241017
  Serious: No
  Sender: ROCHE
  Company Number: CN-ROCHE-3133938

PATIENT
  Age: 51 Year
  Sex: Female

DRUGS (8)
  1. ALECTINIB [Suspect]
     Active Substance: ALECTINIB
     Indication: Non-small cell lung cancer
     Route: 048
     Dates: start: 20220325
  2. REDUCED GLUTATHIONE [Concomitant]
     Route: 042
     Dates: start: 20220802, end: 20220804
  3. PROPACETAMOL HYDROCHLORIDE [Concomitant]
     Active Substance: PROPACETAMOL HYDROCHLORIDE
     Route: 042
     Dates: start: 20220802, end: 20220802
  4. ROXATIDINE ACETATE HYDROCHLORIDE [Concomitant]
     Active Substance: ROXATIDINE ACETATE HYDROCHLORIDE
     Route: 042
     Dates: start: 20220802, end: 20220804
  5. DISODIUM CANTHARIDINATE AND VITAMIN B6 [Concomitant]
     Route: 042
     Dates: start: 20220802, end: 20220804
  6. MAMMAL LIVER [Concomitant]
     Active Substance: MAMMAL LIVER
  7. COMPOUND AMINO ACIDS INJECTION (17AA-III) [Concomitant]
     Route: 042
     Dates: start: 20220802, end: 20220804
  8. VITAMINS [Concomitant]
     Active Substance: VITAMINS
     Route: 042
     Dates: start: 20220802, end: 20220804

REACTIONS (1)
  - Anaemia [Not Recovered/Not Resolved]

NARRATIVE: CASE EVENT DATE: 20220422
